FAERS Safety Report 4934112-0 (Version None)
Quarter: 2006Q1

REPORT INFORMATION
  Report Type: 
  Country: None (occurrence: None)
  Receive Date: 20060303
  Receipt Date: 20060222
  Transmission Date: 20060701
  Serious: Yes (Other)
  Sender: FDA-Public Use
  Company Number: 2006026907

PATIENT
  Age: 56 Year
  Sex: Male
  Weight: 89.3586 kg

DRUGS (10)
  1. VIAGRA [Suspect]
     Indication: ERECTILE DYSFUNCTION
  2. ANTICOAGULANTS (ANTITHROMBOTIC AGENTS) [Concomitant]
  3. TRENTAL [Concomitant]
  4. WELLBUTRIN [Concomitant]
  5. LOVASTATIN [Concomitant]
  6. WARFARIN SODIUM [Concomitant]
  7. BUMEX [Concomitant]
  8. KLOR-CON [Concomitant]
  9. METHADONE HCL [Concomitant]
  10. OXYGEN (OXYGEN) [Concomitant]

REACTIONS (6)
  - ANDROGENS DECREASED [None]
  - DRUG INEFFECTIVE [None]
  - LOSS OF CONSCIOUSNESS [None]
  - OXYGEN SATURATION DECREASED [None]
  - ROAD TRAFFIC ACCIDENT [None]
  - WEIGHT DECREASED [None]
